FAERS Safety Report 6307703-2 (Version None)
Quarter: 2009Q3

REPORT INFORMATION
  Report Type: 
  Country: None (occurrence: None)
  Receive Date: 20090813
  Receipt Date: 20090804
  Transmission Date: 20100115
  Serious: Yes (Other)
  Sender: FDA-Public Use
  Company Number: NL-JNJFOC-20090801330

PATIENT
  Age: 15 Year
  Sex: Male

DRUGS (3)
  1. REMICADE [Suspect]
     Dosage: SLIGHTLY MORE THAN 5M/KG
     Route: 042
  2. REMICADE [Suspect]
     Dosage: SLIGHTLY MORE THAN 5M/KG
     Route: 042
  3. REMICADE [Suspect]
     Indication: INFLAMMATORY BOWEL DISEASE
     Dosage: SLIGHTLY MORE THAN 5M/KG
     Route: 042

REACTIONS (4)
  - EPISTAXIS [None]
  - GINGIVAL BLEEDING [None]
  - HAEMATOMA [None]
  - HAEMORRHAGIC DIATHESIS [None]
